FAERS Safety Report 9847588 (Version 1)
Quarter: 2014Q1

REPORT INFORMATION
  Report Type: Report from Study
  Country: CH (occurrence: CH)
  Receive Date: 20140128
  Receipt Date: 20140128
  Transmission Date: 20141002
  Serious: Yes (Hospitalization)
  Sender: FDA-Public Use
  Company Number: CH-AMGEN-CHECT2014004244

PATIENT
  Age: 83 Year
  Sex: Female
  Weight: 50 kg

DRUGS (6)
  1. PEGFILGRASTIM [Suspect]
     Indication: PLASMA CELL MYELOMA
     Route: 065
  2. BENDAMUSTINE [Concomitant]
     Indication: PLASMA CELL MYELOMA
     Dosage: 108 MG, DAY 1+2 FOR 3 CYCLES
     Route: 042
     Dates: start: 20130708
  3. REVLIMID [Concomitant]
     Indication: PLASMA CELL MYELOMA
     Dosage: 15 MG, DAY 1-21 OF ANY CYCLE
     Route: 048
     Dates: start: 20130708
  4. DEXAMETHASONE [Concomitant]
     Indication: PLASMA CELL MYELOMA
     Dosage: 20 MG, DAY 1,8,15,21 OF ANY CYCLE
     Route: 048
     Dates: start: 20130708
  5. VALACICLOVIR [Concomitant]
     Indication: PROPHYLAXIS
     Dosage: 1 G, UNK
     Route: 048
     Dates: start: 20130708
  6. SULFAMETHOXAZOLE AND TRIMETHOPRIM [Concomitant]
     Indication: ANTIBIOTIC PROPHYLAXIS
     Dosage: 800/1600 MG, 3 TIMES/WK
     Route: 048
     Dates: start: 20130708

REACTIONS (2)
  - Urinary tract infection [Recovered/Resolved]
  - Lung infection [Recovered/Resolved]
